FAERS Safety Report 15005172 (Version 1)
Quarter: 2018Q2

REPORT INFORMATION
  Report Type: Spontaneous
  Country: US (occurrence: US)
  Receive Date: 20180525
  Receipt Date: 20180525
  Transmission Date: 20180711
  Serious: No
  Sender: FDA-Public Use
  Company Number: None

PATIENT
  Age: 49 Year
  Sex: Female

DRUGS (1)
  1. ZEJULA [Suspect]
     Active Substance: NIRAPARIB
     Indication: OVARIAN CANCER
     Dates: start: 20170724

REACTIONS (6)
  - Depression [None]
  - Apathy [None]
  - Insomnia [None]
  - Decreased appetite [None]
  - Suicidal ideation [None]
  - Tachyphrenia [None]
